FAERS Safety Report 24608034 (Version 2)
Quarter: 2024Q4

REPORT INFORMATION
  Report Type: Spontaneous
  Country: US (occurrence: US)
  Receive Date: 20241112
  Receipt Date: 20241119
  Transmission Date: 20250114
  Serious: Yes (Other)
  Sender: TAIHO ONCOLOGY INC
  Company Number: US-TAIHOP-2024-010703

PATIENT
  Age: 68 Year
  Sex: Male

DRUGS (1)
  1. INQOVI [Suspect]
     Active Substance: CEDAZURIDINE\DECITABINE
     Indication: Chronic myeloid leukaemia
     Dosage: DOSE, FREQUENCY, FORM STRENGTH AND CYCLE WERE UNKNOWN.
     Route: 048
     Dates: start: 20240201, end: 20240911

REACTIONS (2)
  - Hepatic cirrhosis [Unknown]
  - Primary biliary cholangitis [Unknown]
